FAERS Safety Report 5637483-5 (Version None)
Quarter: 2008Q1

REPORT INFORMATION
  Report Type: 
  Country: None (occurrence: None)
  Receive Date: 20080219
  Receipt Date: 20080211
  Transmission Date: 20080703
  Serious: Yes (Death, Hospitalization)
  Sender: FDA-Public Use
  Company Number: 163-20785-08011441

PATIENT
  Age: 84 Year
  Sex: Male

DRUGS (11)
  1. THALOMID [Suspect]
     Indication: MULTIPLE MYELOMA
     Dosage: 50 MG, 1 IN 1 D, ORAL
     Route: 048
     Dates: start: 20071210
  2. ASPIRIN [Concomitant]
  3. LISINOPRIL [Concomitant]
  4. SIMVASTATIN [Concomitant]
  5. NORVASC [Concomitant]
  6. LASIX [Concomitant]
  7. METOPROLOL TARTRATE [Concomitant]
  8. ALLOPURINOL [Concomitant]
  9. DEXAMETHASONE TAB [Concomitant]
  10. ZOFRAN [Concomitant]
  11. METHADONE HCL [Concomitant]

REACTIONS (13)
  - ANAEMIA [None]
  - ANGINA UNSTABLE [None]
  - ATRIAL FIBRILLATION [None]
  - MALNUTRITION [None]
  - MYOCARDIAL INFARCTION [None]
  - PNEUMONIA [None]
  - PYELONEPHRITIS [None]
  - REFUSAL OF TREATMENT BY RELATIVE [None]
  - RENAL DISORDER [None]
  - RESPIRATORY FAILURE [None]
  - SEPSIS [None]
  - TYPE 2 DIABETES MELLITUS [None]
  - URINARY TRACT INFECTION [None]
